FAERS Safety Report 13020672 (Version 1)
Quarter: 2016Q4

REPORT INFORMATION
  Report Type: Spontaneous
  Country: IR (occurrence: IR)
  Receive Date: 20161212
  Receipt Date: 20161212
  Transmission Date: 20170207
  Serious: Yes (Other)
  Sender: FDA-Public Use
  Company Number: IR-BAUSCH-BL-2016-030839

PATIENT
  Age: 48 Year
  Sex: Male

DRUGS (1)
  1. OPIUM. [Suspect]
     Active Substance: OPIUM
     Indication: PRODUCT USED FOR UNKNOWN INDICATION
     Route: 065

REACTIONS (2)
  - Drug abuse [Unknown]
  - Retroperitoneal fibrosis [Recovered/Resolved]
